FAERS Safety Report 12764189 (Version 2)
Quarter: 2017Q3

REPORT INFORMATION
  Report Type: Report from Study
  Country: US (occurrence: US)
  Receive Date: 20160920
  Receipt Date: 20170928
  Transmission Date: 20171127
  Serious: Yes (Hospitalization)
  Sender: FDA-Public Use
  Company Number: US-ACTELION-A-NJ2016-142282

PATIENT
  Age: 59 Year
  Sex: Female
  Weight: 90.7 kg

DRUGS (1)
  1. OPSUMIT [Suspect]
     Active Substance: MACITENTAN
     Indication: PULMONARY ARTERIAL HYPERTENSION
     Dosage: 10 MG, QD
     Route: 048
     Dates: start: 20150723

REACTIONS (6)
  - Loss of consciousness [Unknown]
  - Urinary tract infection [Unknown]
  - Blood glucose abnormal [Unknown]
  - Unevaluable event [Not Recovered/Not Resolved]
  - Seizure [Recovering/Resolving]
  - Dehydration [Unknown]
